FAERS Safety Report 25355958 (Version 1)
Quarter: 2025Q2

REPORT INFORMATION
  Report Type: Spontaneous
  Country: AU (occurrence: AU)
  Receive Date: 20250525
  Receipt Date: 20250525
  Transmission Date: 20250716
  Serious: Yes (Other)
  Sender: ROCHE
  Company Number: AU-ROCHE-10000290765

PATIENT

DRUGS (2)
  1. ATEZOLIZUMAB [Suspect]
     Active Substance: ATEZOLIZUMAB
     Indication: Product used for unknown indication
     Route: 065
  2. BEVACIZUMAB [Suspect]
     Active Substance: BEVACIZUMAB
     Indication: Product used for unknown indication
     Route: 065

REACTIONS (2)
  - Hepatocellular carcinoma [Unknown]
  - Diabetes mellitus [Unknown]
